FAERS Safety Report 13057298 (Version 1)
Quarter: 2016Q4

REPORT INFORMATION
  Report Type: Spontaneous
  Country: US (occurrence: US)
  Receive Date: 20161223
  Receipt Date: 20161223
  Transmission Date: 20170207
  Serious: No
  Sender: FDA-Public Use
  Company Number: US-ACORDA-ACO_121342_2016

PATIENT
  Sex: Male
  Weight: 90.7 kg

DRUGS (8)
  1. LYRICA [Suspect]
     Active Substance: PREGABALIN
     Dosage: 100 MG, BID
     Route: 048
  2. ZANAFLEX [Suspect]
     Active Substance: TIZANIDINE HYDROCHLORIDE
     Indication: LIMB DISCOMFORT
     Route: 065
  3. NEUPRO [Suspect]
     Active Substance: ROTIGOTINE
     Indication: LIMB DISCOMFORT
     Dosage: 2 MG, UNK
     Route: 065
     Dates: start: 2014
  4. LYRICA [Suspect]
     Active Substance: PREGABALIN
     Indication: LIMB DISCOMFORT
     Dosage: 75 MG, UNK
     Route: 048
     Dates: start: 201411
  5. LOSARTAN. [Concomitant]
     Active Substance: LOSARTAN
     Indication: HYPERTENSION
     Dosage: 50 MG, QD
     Route: 048
  6. CYMBALTA [Suspect]
     Active Substance: DULOXETINE HYDROCHLORIDE
     Indication: LIMB DISCOMFORT
     Dosage: UNK
     Route: 065
     Dates: start: 20120909
  7. GABAPENTIN. [Suspect]
     Active Substance: GABAPENTIN
     Indication: LIMB DISCOMFORT
     Dosage: 1 CAPSULE BY MOUTH EVERY EVENING X 2 NIGHTS, THEN 1 CAPSULE BID A DAY X 2 DAYS, THEN 1 CAP 3X/D
     Route: 048
  8. VITAMIN D2 [Concomitant]
     Active Substance: ERGOCALCIFEROL
     Indication: VITAMIN D DECREASED
     Dosage: 50000 IU, WEEKLY
     Route: 048

REACTIONS (5)
  - Aggression [Recovered/Resolved]
  - Anger [Recovering/Resolving]
  - Anger [Recovered/Resolved]
  - Off label use [Unknown]
  - Herpes zoster [Unknown]

NARRATIVE: CASE EVENT DATE: 2013
